FAERS Safety Report 7756722-8 (Version None)
Quarter: 2011Q3

REPORT INFORMATION
  Report Type: 
  Country: None (occurrence: None)
  Receive Date: 20110915
  Receipt Date: 20110915
  Transmission Date: 20111222
  Serious: No
  Sender: FDA-Public Use
  Company Number: None

PATIENT
  Sex: Female

DRUGS (5)
  1. NORVASC [Concomitant]
  2. SYNTHROID [Concomitant]
  3. LUPRON DEPOT [Suspect]
     Indication: UTERINE LEIOMYOMA
     Dosage: 3.75MG MONTHLY IM
     Route: 030
     Dates: start: 20110719, end: 20110914
  4. NAPROXEN [Concomitant]
  5. HYDROCODONE BITARTRATE AND IBUPROFEN [Concomitant]

REACTIONS (1)
  - VAGINAL HAEMORRHAGE [None]
